FAERS Safety Report 16664724 (Version 1)
Quarter: 2019Q3

REPORT INFORMATION
  Report Type: Spontaneous
  Country: IT (occurrence: IT)
  Receive Date: 20190803
  Receipt Date: 20190803
  Transmission Date: 20191004
  Serious: Yes (Other)
  Sender: FDA-Public Use
  Company Number: IT-SUN PHARMACEUTICAL INDUSTRIES LTD-2019RR-216216

PATIENT
  Age: 43 Year
  Sex: Female

DRUGS (9)
  1. BEVACIZUMAB. [Suspect]
     Active Substance: BEVACIZUMAB
     Dosage: 16 CYCLES
     Route: 065
     Dates: start: 201510, end: 201611
  2. PEGYLATED LIPOSOMAL DOXORUBICIN [Suspect]
     Active Substance: DOXORUBICIN
     Indication: CHEMOTHERAPY
     Dosage: 20 MILLIGRAM/SQ. METER
     Route: 065
  3. GEMCITABINE. [Suspect]
     Active Substance: GEMCITABINE
     Indication: CHEMOTHERAPY
     Dosage: UNK
     Route: 065
     Dates: start: 201505, end: 201510
  4. EZETIMIBE. [Suspect]
     Active Substance: EZETIMIBE
     Indication: TYPE IIA HYPERLIPIDAEMIA
     Dosage: 10 MILLIGRAM, DAILY
     Route: 065
  5. TRABECTEDIN [Suspect]
     Active Substance: TRABECTEDIN
     Indication: CHEMOTHERAPY
     Dosage: 0.9 MILLIGRAM/SQ. METER
     Route: 065
  6. DEXAMETHASONE. [Suspect]
     Active Substance: DEXAMETHASONE
     Indication: PRODUCT USED FOR UNKNOWN INDICATION
     Dosage: UNK
     Route: 065
  7. BEVACIZUMAB. [Suspect]
     Active Substance: BEVACIZUMAB
     Indication: CHEMOTHERAPY
     Dosage: UNK
     Route: 065
     Dates: start: 201505, end: 201510
  8. CARBOPLATIN. [Suspect]
     Active Substance: CARBOPLATIN
     Indication: CHEMOTHERAPY
     Dosage: UNK
     Route: 065
     Dates: start: 201505, end: 201510
  9. ATORVASTATIN [Suspect]
     Active Substance: ATORVASTATIN
     Indication: TYPE IIA HYPERLIPIDAEMIA
     Dosage: 20 MILLIGRAM, UNK
     Route: 065

REACTIONS (5)
  - Presyncope [Recovered/Resolved]
  - Vomiting [Recovered/Resolved]
  - Asthenia [Recovered/Resolved]
  - Muscle spasms [Recovered/Resolved]
  - Disease recurrence [Unknown]

NARRATIVE: CASE EVENT DATE: 201711
